FAERS Safety Report 21850555 (Version 1)
Quarter: 2023Q1

REPORT INFORMATION
  Report Type: Spontaneous
  Country: None (occurrence: US)
  Receive Date: 20230111
  Receipt Date: 20230111
  Transmission Date: 20230418
  Serious: No
  Sender: FDA-Public Use
  Company Number: US-Vitruvias Therapeutics-2136615

PATIENT
  Age: 73 Year
  Sex: Female

DRUGS (1)
  1. CYANOCOBALAMIN [Suspect]
     Active Substance: CYANOCOBALAMIN

REACTIONS (1)
  - Vertigo [Recovered/Resolved]
